FAERS Safety Report 8395415-3 (Version None)
Quarter: 2012Q2

REPORT INFORMATION
  Report Type: 
  Country: None (occurrence: None)
  Receive Date: 20120525
  Receipt Date: 20120525
  Transmission Date: 20120825
  Serious: Yes (Other)
  Sender: FDA-Public Use
  Company Number: None

PATIENT
  Sex: Female
  Weight: 75.5 kg

DRUGS (2)
  1. DOCETAXEL (TAXOTERE) [Suspect]
     Indication: BREAST CANCER
     Dosage: 130 MG EVERY 3 WEEKS IV INFUSION
     Route: 042
     Dates: start: 20120419
  2. DOCETAXEL (TAXOTERE) [Suspect]
     Dosage: 130 MG EVERY 3 WEEKS IV INFUSION
     Route: 042

REACTIONS (3)
  - OEDEMA PERIPHERAL [None]
  - URTICARIA [None]
  - RASH [None]
